FAERS Safety Report 5722216-4 (Version None)
Quarter: 2008Q2

REPORT INFORMATION
  Report Type: 
  Country: None (occurrence: None)
  Receive Date: 20080429
  Receipt Date: 20080417
  Transmission Date: 20081010
  Serious: Yes (Hospitalization, Other)
  Sender: FDA-Public Use
  Company Number: US-ELI_LILLY_AND_COMPANY-US200804004608

PATIENT
  Sex: Male

DRUGS (1)
  1. FORTEO [Suspect]
     Dates: start: 20070101

REACTIONS (5)
  - BONE PAIN [None]
  - DYSSTASIA [None]
  - FEMUR FRACTURE [None]
  - GAIT DISTURBANCE [None]
  - STRESS FRACTURE [None]
